FAERS Safety Report 23435207 (Version 2)
Quarter: 2024Q1

REPORT INFORMATION
  Report Type: Spontaneous
  Country: US (occurrence: US)
  Receive Date: 20240123
  Receipt Date: 20240129
  Transmission Date: 20240409
  Serious: No
  Sender: FDA-Public Use
  Company Number: US-Blueprint Medicines Corporation-1995

PATIENT
  Sex: Female

DRUGS (3)
  1. AYVAKIT [Suspect]
     Active Substance: AVAPRITINIB
     Indication: Systemic mastocytosis
     Route: 065
     Dates: start: 20231229
  2. AYVAKIT [Suspect]
     Active Substance: AVAPRITINIB
     Indication: Indolent systemic mastocytosis
  3. AYVAKIT [Suspect]
     Active Substance: AVAPRITINIB
     Indication: Mastocytic enterocolitis

REACTIONS (15)
  - Headache [Unknown]
  - Pyrexia [Unknown]
  - Nasopharyngitis [Unknown]
  - White blood cell count decreased [Unknown]
  - Neutrophil count [Unknown]
  - Chills [Unknown]
  - Cough [Unknown]
  - Oropharyngeal pain [Unknown]
  - Infection [Unknown]
  - Dizziness [Unknown]
  - Oedema peripheral [Unknown]
  - Flushing [Unknown]
  - Respiratory tract infection [Unknown]
  - Eye oedema [Unknown]
  - Intentional dose omission [Unknown]
